FAERS Safety Report 16334128 (Version 3)
Quarter: 2019Q4

REPORT INFORMATION
  Report Type: Spontaneous
  Country: FR (occurrence: FR)
  Receive Date: 20190520
  Receipt Date: 20191107
  Transmission Date: 20200122
  Serious: Yes (Hospitalization, Other)
  Sender: FDA-Public Use
  Company Number: FR-MYLANLABS-2019M1047869

PATIENT
  Age: 27 Year
  Sex: Female

DRUGS (10)
  1. EVEROLIMUS. [Suspect]
     Active Substance: EVEROLIMUS
     Dosage: 10 MILLIGRAM
     Route: 065
  2. EPITOMAX [Concomitant]
     Active Substance: TOPIRAMATE
     Indication: MENTAL DISORDER
  3. EPITOMAX [Concomitant]
     Active Substance: TOPIRAMATE
     Indication: EPILEPSY
     Dosage: UNK
  4. TERCIAN                            /00759301/ [Concomitant]
     Active Substance: CYAMEMAZINE
     Indication: EPILEPSY
  5. EVEROLIMUS. [Suspect]
     Active Substance: EVEROLIMUS
     Indication: TUBEROUS SCLEROSIS COMPLEX
     Dosage: 10 MILLIGRAM
     Route: 065
  6. EVEROLIMUS. [Suspect]
     Active Substance: EVEROLIMUS
     Dosage: 7.5 MILLIGRAM
     Route: 065
  7. HALDOL [Concomitant]
     Active Substance: HALOPERIDOL
     Indication: EPILEPSY
     Dosage: UNK
  8. HALDOL [Concomitant]
     Active Substance: HALOPERIDOL
     Indication: MENTAL DISORDER
  9. AFINITOR [Suspect]
     Active Substance: EVEROLIMUS
     Indication: TUBEROUS SCLEROSIS COMPLEX
     Dosage: UNK
     Route: 065
     Dates: start: 2013
  10. TERCIAN                            /00759301/ [Concomitant]
     Active Substance: CYAMEMAZINE
     Indication: MENTAL DISORDER
     Dosage: UNK
     Route: 065

REACTIONS (5)
  - Off label use [Unknown]
  - Erythema [Unknown]
  - Skin disorder [Unknown]
  - Hallucination, auditory [Unknown]
  - Skin plaque [Unknown]

NARRATIVE: CASE EVENT DATE: 2013
